FAERS Safety Report 7717544-7 (Version None)
Quarter: 2011Q3

REPORT INFORMATION
  Report Type: 
  Country: None (occurrence: None)
  Receive Date: 20110830
  Receipt Date: 20110817
  Transmission Date: 20111222
  Serious: Yes (Death, Congenital Anomaly)
  Sender: FDA-Public Use
  Company Number: GB-UCBSA-037638

PATIENT

DRUGS (3)
  1. LAMOTRIGINE [Suspect]
     Route: 064
  2. LEVETIRACETAM [Suspect]
     Route: 064
  3. CLONAZEPAM [Suspect]
     Route: 064

REACTIONS (3)
  - SPINA BIFIDA [None]
  - MATERNAL EXPOSURE DURING PREGNANCY [None]
  - TALIPES [None]
